FAERS Safety Report 15132697 (Version 3)
Quarter: 2018Q3

REPORT INFORMATION
  Report Type: Spontaneous
  Country: TT (occurrence: TT)
  Receive Date: 20180712
  Receipt Date: 20180727
  Transmission Date: 20181010
  Serious: Yes (Death, Life-Threatening, Hospitalization, Other)
  Sender: FDA-Public Use
  Company Number: TT-009507513-1807TTO003483

PATIENT
  Age: 31 Year
  Sex: Female

DRUGS (1)
  1. JANUMET [Suspect]
     Active Substance: METFORMIN HYDROCHLORIDE\SITAGLIPTIN PHOSPHATE
     Indication: TYPE 2 DIABETES MELLITUS
     Dosage: 50/500MG, BID
     Route: 048
     Dates: start: 2011, end: 20180628

REACTIONS (7)
  - Hypotension [Unknown]
  - Diaphragmatic disorder [Unknown]
  - Hypoxia [Unknown]
  - Dehydration [Unknown]
  - Pancreatitis acute [Fatal]
  - Renal impairment [Unknown]
  - Diabetic ketoacidosis [Unknown]

NARRATIVE: CASE EVENT DATE: 2018
